FAERS Safety Report 7204256-1 (Version None)
Quarter: 2010Q4

REPORT INFORMATION
  Report Type: 
  Country: None (occurrence: None)
  Receive Date: 20101230
  Receipt Date: 20101223
  Transmission Date: 20110411
  Serious: Yes (Other)
  Sender: FDA-Public Use
  Company Number: IT-PFIZER INC-2010179441

PATIENT
  Age: 29 Year
  Sex: Male

DRUGS (1)
  1. ZITROMAX [Suspect]
     Indication: BRONCHITIS
     Dosage: 1 DF, 1X/DAY
     Route: 048
     Dates: start: 20100702, end: 20100703

REACTIONS (1)
  - DYSENTERY [None]
